FAERS Safety Report 17994791 (Version 1)
Quarter: 2020Q3

REPORT INFORMATION
  Report Type: Spontaneous
  Country: US (occurrence: US)
  Receive Date: 20200708
  Receipt Date: 20200708
  Transmission Date: 20201103
  Serious: Yes (Death)
  Sender: FDA-Public Use
  Company Number: None

PATIENT
  Age: 76 Year
  Sex: Male

DRUGS (1)
  1. REMDESIVIR. [Suspect]
     Active Substance: REMDESIVIR
     Indication: SUSPECTED COVID-19
     Dosage: ?          OTHER FREQUENCY:ONCE;?
     Route: 042
     Dates: start: 20200623, end: 20200624

REACTIONS (7)
  - Tachypnoea [None]
  - Tachycardia [None]
  - Respiratory disorder [None]
  - Hypotension [None]
  - Septic shock [None]
  - Hypoxia [None]
  - Atrial fibrillation [None]

NARRATIVE: CASE EVENT DATE: 20200705
